FAERS Safety Report 9894844 (Version 1)
Quarter: 2014Q1

REPORT INFORMATION
  Report Type: Spontaneous
  Country: ES (occurrence: ES)
  Receive Date: 20140213
  Receipt Date: 20140213
  Transmission Date: 20141002
  Serious: Yes (Hospitalization)
  Sender: FDA-Public Use
  Company Number: PHHY2014ES016119

PATIENT
  Age: 64 Year
  Sex: Female

DRUGS (6)
  1. 5-FLUOROURACIL [Suspect]
     Indication: COLORECTAL CANCER METASTATIC
     Dosage: 400 MG/M2, QW2
     Route: 042
  2. 5-FLUOROURACIL [Suspect]
     Dosage: 2400 MG/M2, UNK
  3. LEUCOVORIN CALCIUM [Suspect]
     Indication: COLORECTAL CANCER METASTATIC
     Dosage: 200 MG/M2, QW2
     Route: 042
  4. OXALIPLATIN [Suspect]
     Indication: COLORECTAL CANCER METASTATIC
     Dosage: 85 MG/M2, QW2
  5. GRANISETRON [Concomitant]
     Dosage: 1 MG, UNK
     Route: 042
  6. DEXAMETHASONE [Concomitant]
     Dosage: 20 MG, UNK

REACTIONS (9)
  - Subacute cutaneous lupus erythematosus [Recovered/Resolved]
  - Skin plaque [Recovered/Resolved]
  - Rash erythematous [Recovered/Resolved]
  - Hyperkeratosis [Recovered/Resolved]
  - Cardiotoxicity [Recovered/Resolved]
  - Angina pectoris [Recovered/Resolved]
  - Sinus tachycardia [Recovered/Resolved]
  - Colorectal cancer metastatic [Unknown]
  - Malignant neoplasm progression [Unknown]
